FAERS Safety Report 23175933 (Version 1)
Quarter: 2023Q4

REPORT INFORMATION
  Report Type: Spontaneous
  Country: CH (occurrence: CH)
  Receive Date: 20231113
  Receipt Date: 20231113
  Transmission Date: 20240109
  Serious: Yes (Hospitalization)
  Sender: FDA-Public Use
  Company Number: None

PATIENT
  Age: 42 Year
  Sex: Female
  Weight: 40 kg

DRUGS (9)
  1. HERCEPTIN [Suspect]
     Active Substance: TRASTUZUMAB
     Indication: Invasive ductal breast carcinoma
     Dosage: 4 CYCLES ; CYCLICAL
     Route: 041
     Dates: start: 20210604, end: 20210806
  2. KADCYLA [Suspect]
     Active Substance: ADO-TRASTUZUMAB EMTANSINE
     Indication: Invasive ductal breast carcinoma
     Dosage: .
     Route: 041
     Dates: start: 20220112
  3. KADCYLA [Suspect]
     Active Substance: ADO-TRASTUZUMAB EMTANSINE
     Indication: Invasive ductal breast carcinoma
     Dosage: 14 CYCLES ; CYCLICAL
     Route: 041
     Dates: start: 20220805, end: 20230106
  4. PERJETA [Suspect]
     Active Substance: PERTUZUMAB
     Indication: Invasive ductal breast carcinoma
     Dosage: 4 CYCLES ; CYCLICAL
     Route: 041
     Dates: start: 20210604, end: 20210806
  5. CYCLOPHOSPHAMIDE [Suspect]
     Active Substance: CYCLOPHOSPHAMIDE
     Indication: Invasive ductal breast carcinoma
     Dosage: 4 CYCLES ; CYCLICAL
     Route: 041
     Dates: start: 20210901, end: 20211103
  6. TAXOTERE [Concomitant]
     Active Substance: DOCETAXEL
     Indication: Invasive ductal breast carcinoma
     Dosage: 4 CYCLES ; CYCLICAL
     Route: 041
     Dates: start: 20210604, end: 20210806
  7. EXEMESTANE [Concomitant]
     Active Substance: EXEMESTANE
     Indication: Invasive ductal breast carcinoma
     Route: 048
     Dates: start: 20220805
  8. LEUPROLIDE ACETATE [Concomitant]
     Active Substance: LEUPROLIDE ACETATE
     Indication: Invasive ductal breast carcinoma
     Dates: start: 20220607
  9. EPIRUBICIN [Concomitant]
     Active Substance: EPIRUBICIN
     Indication: Invasive ductal breast carcinoma
     Dosage: 4 CYCLE
     Route: 041
     Dates: start: 20210901

REACTIONS (1)
  - Pulmonary arterial hypertension [Not Recovered/Not Resolved]

NARRATIVE: CASE EVENT DATE: 20231012
